FAERS Safety Report 20563407 (Version 7)
Quarter: 2022Q3

REPORT INFORMATION
  Report Type: Report from Study
  Country: DE (occurrence: DE)
  Receive Date: 20220308
  Receipt Date: 20220919
  Transmission Date: 20221026
  Serious: Yes (Other)
  Sender: FDA-Public Use
  Company Number: DE-CELLTRION INC.-2022DE001123

PATIENT

DRUGS (4)
  1. TRASTUZUMAB [Suspect]
     Active Substance: TRASTUZUMAB
     Indication: Breast cancer
     Dosage: LAST DOSE PRIOR TO EVENT; PHARMACEUTICAL DOSE FORM: INFUSION, SOLUTION
     Dates: start: 20211214
  2. PERTUZUMAB [Suspect]
     Active Substance: PERTUZUMAB
     Indication: Breast cancer
     Dosage: DATE OF LAST DOSE PRIOR TO AE: 14/DEC/2021
     Route: 042
     Dates: start: 20211214
  3. PACLITAXEL [Suspect]
     Active Substance: PACLITAXEL
     Indication: Breast cancer
     Dosage: DATE OF LAST DOSE PRIOR TO AE: 28/DEC/2021, LAST DOSE PRIOR TO AE: 125 MG
     Dates: start: 20211123, end: 20220322
  4. LIDOCAINE [Concomitant]
     Active Substance: LIDOCAINE
     Dosage: 1 G
     Dates: start: 20220104

REACTIONS (6)
  - Polyneuropathy [Recovered/Resolved]
  - Infusion related reaction [Unknown]
  - Mucosal inflammation [Recovered/Resolved]
  - Cough [Recovered/Resolved]
  - Diarrhoea [Recovered/Resolved]
  - Overdose [Unknown]

NARRATIVE: CASE EVENT DATE: 20211214
